FAERS Safety Report 6161053-6 (Version None)
Quarter: 2009Q2

REPORT INFORMATION
  Report Type: 
  Country: None (occurrence: None)
  Receive Date: 20090420
  Receipt Date: 20090407
  Transmission Date: 20091009
  Serious: Yes (Other)
  Sender: FDA-Public Use
  Company Number: US-PFIZER INC-2009187883

PATIENT
  Sex: Female
  Weight: 58.05 kg

DRUGS (3)
  1. ZOLOFT [Suspect]
     Indication: DEPRESSION
     Route: 048
     Dates: start: 20090303, end: 20090313
  2. ZOLOFT [Suspect]
     Indication: ANXIETY
  3. VALIUM [Concomitant]

REACTIONS (4)
  - CARDIAC INFECTION [None]
  - DRUG INEFFECTIVE [None]
  - LOCALISED INFECTION [None]
  - NAUSEA [None]
